FAERS Safety Report 25515293 (Version 1)
Quarter: 2025Q3

REPORT INFORMATION
  Report Type: Report from Study
  Country: US (occurrence: US)
  Receive Date: 20250704
  Receipt Date: 20250704
  Transmission Date: 20251021
  Serious: Yes (Hospitalization)
  Sender: ABBVIE
  Company Number: US-ABBVIE-6272410

PATIENT
  Age: 61 Year
  Sex: Male

DRUGS (1)
  1. CREON [Suspect]
     Active Substance: PANCRELIPASE AMYLASE\PANCRELIPASE LIPASE\PANCRELIPASE PROTEASE
     Indication: Pancreatic failure
     Route: 048
     Dates: start: 20250422

REACTIONS (4)
  - Aneurysm [Recovering/Resolving]
  - Lipase increased [Not Recovered/Not Resolved]
  - Pancreatitis chronic [Unknown]
  - Pancreatolithiasis [Recovering/Resolving]

NARRATIVE: CASE EVENT DATE: 20250101
